FAERS Safety Report 15265619 (Version 1)
Quarter: 2018Q3

REPORT INFORMATION
  Report Type: Spontaneous
  Country: DE (occurrence: DE)
  Receive Date: 20180810
  Receipt Date: 20180810
  Transmission Date: 20181010
  Serious: Yes (Death, Other)
  Sender: FDA-Public Use
  Company Number: DE-SHIRE-DE201830751

PATIENT

DRUGS (3)
  1. INTUNIV [Suspect]
     Active Substance: GUANFACINE HYDROCHLORIDE
     Indication: ATTENTION DEFICIT/HYPERACTIVITY DISORDER
     Dosage: UNTIL 04?MAY?2018 3MG 0?0?1?0, UNTIL 08?JUN? 4MG, 3MG SINCE 07?JUN?2018, 2MG SINCE 20?JUN?2018
     Route: 048
     Dates: start: 20170701, end: 20180622
  2. MOVICOL JUNIOR NEUTRAL [Concomitant]
     Indication: CONSTIPATION
     Dosage: UNK
     Route: 048
  3. ABILIFY [Suspect]
     Active Substance: ARIPIPRAZOLE
     Indication: IMPULSIVE BEHAVIOUR
     Dosage: 7.5 MG 1?0?0?0 SINCE 18?JUN?2018 (2.5MG FROM 16?MAY? 22?MAY BREAK), FROM 6?JUN. 2.5MG, 13?JUN 5 MG
     Route: 048
     Dates: start: 20180606, end: 20180622

REACTIONS (1)
  - Cardiac arrest [Fatal]

NARRATIVE: CASE EVENT DATE: 20180622
